FAERS Safety Report 12451285 (Version 1)
Quarter: 2016Q2

REPORT INFORMATION
  Report Type: Report from Study
  Country: US (occurrence: US)
  Receive Date: 20160609
  Receipt Date: 20160609
  Transmission Date: 20160815
  Serious: No
  Sender: FDA-Public Use
  Company Number: US-AMGEN-USASL2016072045

PATIENT
  Age: 45 Year
  Sex: Female

DRUGS (1)
  1. ENBREL [Suspect]
     Active Substance: ETANERCEPT
     Indication: PSORIATIC ARTHROPATHY
     Dosage: 50 MG, QWK
     Route: 065
     Dates: start: 2015

REACTIONS (8)
  - Skin discolouration [Not Recovered/Not Resolved]
  - Feeling cold [Unknown]
  - Injection site pain [Recovering/Resolving]
  - Arthritis [Unknown]
  - Foot deformity [Unknown]
  - Nervousness [Unknown]
  - Intentional product misuse [Unknown]
  - Finger deformity [Not Recovered/Not Resolved]
